FAERS Safety Report 4630582-6 (Version None)
Quarter: 2005Q2

REPORT INFORMATION
  Report Type: 
  Country: None (occurrence: None)
  Receive Date: 20050408
  Receipt Date: 20050308
  Transmission Date: 20051028
  Serious: Yes (Hospitalization)
  Sender: FDA-Public Use
  Company Number: US-MERCK-0503USA01170

PATIENT
  Age: 50 Year
  Sex: Male
  Weight: 86 kg

DRUGS (8)
  1. INVANZ [Suspect]
     Indication: PROPHYLAXIS
     Route: 042
     Dates: start: 20050305, end: 20050308
  2. PROTONIX [Concomitant]
     Indication: PROPHYLAXIS
     Route: 042
     Dates: start: 20050305, end: 20050308
  3. DILAUDID [Concomitant]
     Indication: PAIN
     Route: 042
     Dates: start: 20050305, end: 20050309
  4. REGLAN [Concomitant]
     Indication: VOMITING
     Route: 042
     Dates: start: 20050305, end: 20050309
  5. REGLAN [Concomitant]
     Indication: NAUSEA
     Route: 042
     Dates: start: 20050305, end: 20050309
  6. ASPIRIN [Suspect]
     Route: 048
     Dates: start: 20050305, end: 20050305
  7. ADVIL [Suspect]
     Route: 048
     Dates: start: 20050305, end: 20050305
  8. TORADOL [Suspect]
     Route: 042
     Dates: start: 20050305, end: 20050305

REACTIONS (3)
  - OPERATIVE HAEMORRHAGE [None]
  - POST PROCEDURAL COMPLICATION [None]
  - PROTHROMBIN TIME PROLONGED [None]
